FAERS Safety Report 15506754 (Version 1)
Quarter: 2018Q4

REPORT INFORMATION
  Report Type: Spontaneous
  Country: DE (occurrence: DE)
  Receive Date: 20181016
  Receipt Date: 20181016
  Transmission Date: 20190205
  Serious: Yes (Death, Hospitalization, Other)
  Sender: FDA-Public Use
  Company Number: PHHY2018DE124436

PATIENT
  Age: 34 Year
  Sex: Male
  Weight: 82 kg

DRUGS (17)
  1. NPLATE [Suspect]
     Active Substance: ROMIPLOSTIM
     Dosage: 250 MUG, UNK
     Route: 058
     Dates: start: 20160926, end: 20160926
  2. LEMTRADA [Suspect]
     Active Substance: ALEMTUZUMAB
     Indication: MULTIPLE SCLEROSIS
     Dosage: 12 MG, QD
     Route: 042
     Dates: start: 201502, end: 201502
  3. IMMUNOGLOBULIN NOS [Concomitant]
     Active Substance: IMMUNE GLOBULIN NOS
     Indication: PRODUCT USED FOR UNKNOWN INDICATION
     Dosage: 30 G, QD
     Route: 065
     Dates: start: 20161111, end: 20161114
  4. IMMUNOGLOBULIN NOS [Concomitant]
     Active Substance: IMMUNE GLOBULIN NOS
     Dosage: 80 G, QD
     Route: 065
     Dates: start: 20161128
  5. PANTOPRAZOLE [Concomitant]
     Active Substance: PANTOPRAZOLE
     Indication: PRODUCT USED FOR UNKNOWN INDICATION
     Route: 065
  6. RITUXIMAB. [Concomitant]
     Active Substance: RITUXIMAB
     Indication: THROMBOCYTOPENIA
     Dosage: 375 MG/M2, UNK
     Route: 065
  7. NPLATE [Suspect]
     Active Substance: ROMIPLOSTIM
     Indication: IMMUNE THROMBOCYTOPENIC PURPURA
     Dosage: 500 MUG, UNK
     Route: 058
     Dates: start: 20161107, end: 20161110
  8. NPLATE [Suspect]
     Active Substance: ROMIPLOSTIM
     Dosage: 750 MUG, QWK
     Route: 058
     Dates: start: 20161111, end: 20161114
  9. ACICLOVIR [Suspect]
     Active Substance: ACYCLOVIR
     Indication: PRODUCT USED FOR UNKNOWN INDICATION
     Dosage: UNK
     Route: 065
  10. PARACETAMOL [Concomitant]
     Active Substance: ACETAMINOPHEN
     Indication: PRODUCT USED FOR UNKNOWN INDICATION
     Dosage: 1 G, UNK
     Route: 065
  11. MOCLOBEMIDE [Concomitant]
     Active Substance: MOCLOBEMIDE
     Indication: PRODUCT USED FOR UNKNOWN INDICATION
     Route: 065
  12. LEMTRADA [Suspect]
     Active Substance: ALEMTUZUMAB
     Dosage: 1 DF, Q12MO
     Route: 042
     Dates: start: 201603
  13. OCTAGAM IMMUNE GLOBULIN (HUMAN) [Concomitant]
     Active Substance: HUMAN IMMUNOGLOBULIN G
     Indication: THROMBOCYTOPENIA
     Dosage: UNK
     Route: 065
  14. ELTROMBOPAG [Concomitant]
     Active Substance: ELTROMBOPAG
     Indication: PRODUCT USED FOR UNKNOWN INDICATION
     Dosage: 50 MG, UNK
     Route: 065
     Dates: start: 20161119
  15. DEXAMETHASONE. [Concomitant]
     Active Substance: DEXAMETHASONE
     Indication: PLATELET COUNT ABNORMAL
     Dosage: 40 MG, QD
     Route: 065
     Dates: start: 201609
  16. PREDNISOLONE. [Concomitant]
     Active Substance: PREDNISOLONE
     Indication: IMMUNE THROMBOCYTOPENIC PURPURA
     Route: 065
  17. TOPIRAMAT [Concomitant]
     Active Substance: TOPIRAMATE
     Indication: PRODUCT USED FOR UNKNOWN INDICATION
     Route: 065

REACTIONS (29)
  - Abdominal pain [Fatal]
  - Haematuria [Fatal]
  - Migraine [Fatal]
  - Haematoma [Fatal]
  - Hallucination [Fatal]
  - Cerebellar haemorrhage [Fatal]
  - Bone pain [Fatal]
  - Petechiae [Fatal]
  - Immune thrombocytopenic purpura [Fatal]
  - Pyrexia [Fatal]
  - Herpes zoster [Fatal]
  - Asthenia [Fatal]
  - Fatigue [Fatal]
  - Haemorrhagic diathesis [Fatal]
  - Mouth ulceration [Fatal]
  - Subarachnoid haemorrhage [Fatal]
  - Platelet count decreased [Fatal]
  - Melaena [Fatal]
  - Anti-platelet antibody positive [Fatal]
  - Headache [Fatal]
  - Gastrointestinal disorder [Fatal]
  - Drug ineffective [Fatal]
  - Cerebral haemorrhage [Fatal]
  - Epistaxis [Fatal]
  - Gastric haemorrhage [Fatal]
  - Nausea [Fatal]
  - Brain stem haemorrhage [Fatal]
  - Mucosal haemorrhage [Fatal]
  - Rash [Fatal]

NARRATIVE: CASE EVENT DATE: 2016
